FAERS Safety Report 10377451 (Version 2)
Quarter: 2014Q4

REPORT INFORMATION
  Report Type: Spontaneous
  Country: JP (occurrence: JP)
  Receive Date: 20140812
  Receipt Date: 20141013
  Transmission Date: 20150528
  Serious: Yes (Hospitalization, Other)
  Sender: FDA-Public Use
  Company Number: PHHY2013JP160137

PATIENT
  Age: 60 Year
  Sex: Male

DRUGS (2)
  1. SUNITINIB [Suspect]
     Active Substance: SUNITINIB
     Indication: PRODUCT USED FOR UNKNOWN INDICATION
     Dosage: 500 MG, UNK
     Route: 065
  2. GLIVEC [Suspect]
     Active Substance: IMATINIB MESYLATE
     Indication: GASTROINTESTINAL STROMAL TUMOUR
     Dosage: 400 MG, DAILY
     Route: 065
     Dates: end: 201308

REACTIONS (4)
  - Condition aggravated [Recovered/Resolved]
  - Neoplasm [Recovered/Resolved]
  - Intestinal obstruction [Recovered/Resolved]
  - Metastases to peritoneum [Recovered/Resolved]

NARRATIVE: CASE EVENT DATE: 201308
